FAERS Safety Report 7412538-3 (Version None)
Quarter: 2011Q2

REPORT INFORMATION
  Report Type: 
  Country: None (occurrence: None)
  Receive Date: 20110408
  Receipt Date: 20110408
  Transmission Date: 20111010
  Serious: No
  Sender: FDA-Public Use
  Company Number: None

PATIENT
  Age: 39 Year
  Sex: Male
  Weight: 113.3993 kg

DRUGS (3)
  1. FACTIVE [Suspect]
     Indication: BRONCHITIS
     Dosage: 1 PILL ONCE DAILY PO
     Route: 048
     Dates: start: 20110329, end: 20110404
  2. DEXILANT [Concomitant]
  3. LIPITOR [Concomitant]

REACTIONS (1)
  - RASH GENERALISED [None]
